FAERS Safety Report 12904604 (Version 1)
Quarter: 2016Q4

REPORT INFORMATION
  Report Type: Report from Study
  Country: FI (occurrence: FI)
  Receive Date: 20161102
  Receipt Date: 20161102
  Transmission Date: 20170207
  Serious: Yes (Hospitalization, Other)
  Sender: FDA-Public Use
  Company Number: FI-BRISTOL-MYERS SQUIBB COMPANY-BMS-2016-077764

PATIENT
  Age: 64 Year
  Sex: Male
  Weight: 77.2 kg

DRUGS (6)
  1. PARACETAMOL [Concomitant]
     Active Substance: ACETAMINOPHEN
     Indication: PYREXIA
     Dosage: 3.000 G, UNK
     Route: 048
     Dates: start: 20160914
  2. NIVOLUMAB [Suspect]
     Active Substance: NIVOLUMAB
     Indication: MALIGNANT MELANOMA
     Dosage: 77 MG, UNK
     Route: 042
     Dates: start: 20160818
  3. CEFUROXIME. [Concomitant]
     Active Substance: CEFUROXIME
     Indication: PYREXIA
     Dosage: 4.500 G, UNK
     Route: 042
     Dates: start: 20160914, end: 20160916
  4. AMOXICILLIN. [Concomitant]
     Active Substance: AMOXICILLIN
     Indication: PRODUCT USED FOR UNKNOWN INDICATION
     Dosage: 3.000 G, UNK
     Route: 048
     Dates: start: 20160916, end: 20160924
  5. IPILIMUMAB [Suspect]
     Active Substance: IPILIMUMAB
     Indication: MALIGNANT MELANOMA
     Dosage: 232 MG, UNK
     Route: 042
     Dates: start: 20160818
  6. IBUPROFEN. [Concomitant]
     Active Substance: IBUPROFEN
     Indication: FLANK PAIN
     Dosage: 600 MG, UNK
     Route: 048
     Dates: start: 20160817

REACTIONS (3)
  - Pneumonia [Recovered/Resolved]
  - Pyrexia [Recovered/Resolved]
  - Pneumonitis [Recovered/Resolved]

NARRATIVE: CASE EVENT DATE: 20160914
